FAERS Safety Report 12877480 (Version 3)
Quarter: 2017Q1

REPORT INFORMATION
  Report Type: Spontaneous
  Country: BR (occurrence: BR)
  Receive Date: 20161024
  Receipt Date: 20170103
  Transmission Date: 20170428
  Serious: Yes (Life-Threatening, Hospitalization, Other)
  Sender: FDA-Public Use
  Company Number: BR-ALEXION PHARMACEUTICALS INC.-A201607994

PATIENT
  Age: 7 Month
  Sex: Female
  Weight: 4.12 kg

DRUGS (2)
  1. KANUMA [Suspect]
     Active Substance: SEBELIPASE ALFA
     Dosage: 5 MG/KG, Q2W
     Route: 042
     Dates: start: 20161014
  2. KANUMA [Suspect]
     Active Substance: SEBELIPASE ALFA
     Indication: LYSOSOMAL ACID LIPASE DEFICIENCY
     Dosage: 3 MG/KG, QW
     Route: 042
     Dates: start: 20160307

REACTIONS (14)
  - Respiratory failure [Unknown]
  - Hypothermia neonatal [Recovered/Resolved]
  - Klebsiella sepsis [Unknown]
  - Oedema [Recovered/Resolved]
  - Abdominal distension [Recovering/Resolving]
  - Klebsiella infection [Unknown]
  - Polymerase chain reaction [Unknown]
  - Acute kidney injury [Recovered/Resolved]
  - Poor venous access [Unknown]
  - Hypoglycaemia [Recovered/Resolved]
  - General physical health deterioration [Unknown]
  - Hypoperfusion [Unknown]
  - Oliguria [Unknown]
  - Device related infection [Unknown]

NARRATIVE: CASE EVENT DATE: 20161007
